FAERS Safety Report 26204187 (Version 1)
Quarter: 2025Q4

REPORT INFORMATION
  Report Type: Spontaneous
  Country: JP (occurrence: JP)
  Receive Date: 20251226
  Receipt Date: 20251226
  Transmission Date: 20260118
  Serious: Yes (Hospitalization)
  Sender: PFIZER
  Company Number: JP-PFIZER INC-202500247767

PATIENT
  Age: 7 Decade
  Sex: Male

DRUGS (2)
  1. FLUCONAZOLE [Suspect]
     Active Substance: FLUCONAZOLE
     Indication: Systemic candida
     Dosage: UNK
     Route: 048
  2. ITRACONAZOLE [Suspect]
     Active Substance: ITRACONAZOLE
     Dosage: UNK
     Route: 048

REACTIONS (2)
  - Pancreatitis [Unknown]
  - Drug resistance [Unknown]
